FAERS Safety Report 5530665-2 (Version None)
Quarter: 2007Q4

REPORT INFORMATION
  Report Type: 
  Country: None (occurrence: None)
  Receive Date: 20071128
  Receipt Date: 20071128
  Transmission Date: 20080405
  Serious: Yes (Life-Threatening)
  Sender: FDA-Public Use
  Company Number: None

PATIENT
  Age: 39 Year
  Sex: Male
  Weight: 70 kg

DRUGS (19)
  1. CEFEPIME [Suspect]
     Indication: BACTERAEMIA
     Dosage: 1-2 GM IV Q 8 HOURS
     Route: 042
     Dates: start: 20070925, end: 20070927
  2. CEFEPIME [Suspect]
     Indication: PSEUDOMONAS INFECTION
     Dosage: 1-2 GM IV Q 8 HOURS
     Route: 042
     Dates: start: 20070925, end: 20070927
  3. APAP TAB [Concomitant]
  4. ACYCLOVIR [Concomitant]
  5. AMITRIPTLINE HCL [Concomitant]
  6. CLOTRIMAZOLE [Concomitant]
  7. DIAZEPAM [Concomitant]
  8. DIPHENHYDRAMINE HCL [Concomitant]
  9. ESCITALOPRAM [Concomitant]
  10. LOPERAMIDE HCL [Concomitant]
  11. LORATADINE [Concomitant]
  12. LORAZEPAM [Concomitant]
  13. MG [Concomitant]
  14. METHYLPREDNISOLONE [Concomitant]
  15. OXYBUTYNINE [Concomitant]
  16. ZOLPIDEM TARTRATE [Concomitant]
  17. TOCOPHEROL CONCENTRATE CAP [Concomitant]
  18. VORICONAZOLE [Concomitant]
  19. TACROLIMUS [Concomitant]

REACTIONS (5)
  - BLOOD BILIRUBIN INCREASED [None]
  - BLOOD LACTATE DEHYDROGENASE INCREASED [None]
  - CULTURE POSITIVE [None]
  - HAEMOGLOBIN DECREASED [None]
  - PSEUDOMONAS INFECTION [None]
